FAERS Safety Report 5511980-5 (Version None)
Quarter: 2007Q4

REPORT INFORMATION
  Report Type: 
  Country: None (occurrence: None)
  Receive Date: 20071109
  Receipt Date: 20071031
  Transmission Date: 20080405
  Serious: Yes (Other)
  Sender: FDA-Public Use
  Company Number: GB-MERCK-0711USA01845

PATIENT
  Age: 45 Year
  Sex: Female

DRUGS (2)
  1. ALPHAREDISOL [Suspect]
     Route: 051
  2. CYANOCOBALAMIN [Concomitant]
     Indication: PERNICIOUS ANAEMIA
     Route: 051

REACTIONS (1)
  - ANAPHYLACTIC REACTION [None]
